FAERS Safety Report 15010156 (Version 2)
Quarter: 2019Q2

REPORT INFORMATION
  Report Type: Spontaneous
  Country: US (occurrence: US)
  Receive Date: 20180614
  Receipt Date: 20190411
  Transmission Date: 20190711
  Serious: No
  Sender: FDA-Public Use
  Company Number: US-PFIZER INC-2018241918

PATIENT
  Age: 79 Year
  Sex: Male
  Weight: 70.3 kg

DRUGS (7)
  1. PROGRAF [Concomitant]
     Active Substance: TACROLIMUS\TACROLIMUS ANHYDROUS
     Dosage: 0.5 MG, UNK
  2. K [Concomitant]
     Dosage: UNK
  3. VALTREX [Concomitant]
     Active Substance: VALACYCLOVIR HYDROCHLORIDE
     Dosage: 1 G, UNK
  4. BOSULIF [Suspect]
     Active Substance: BOSUTINIB MONOHYDRATE
     Indication: CHRONIC MYELOID LEUKAEMIA
     Dosage: 100 MG, UNK
  5. MAGNESIUM [Concomitant]
     Active Substance: MAGNESIUM
     Dosage: 250 MG, UNK
  6. BOSULIF [Suspect]
     Active Substance: BOSUTINIB MONOHYDRATE
     Dosage: 400 MG, DAILY
     Route: 048
  7. MEPRON [Concomitant]
     Active Substance: ATOVAQUONE
     Dosage: UNK, (750 MG/5 ML)

REACTIONS (1)
  - Rash [Unknown]
